FAERS Safety Report 4357759-1 (Version None)
Quarter: 2004Q2

REPORT INFORMATION
  Report Type: 
  Country: None (occurrence: None)
  Receive Date: 20040510
  Receipt Date: 20040429
  Transmission Date: 20050107
  Serious: Yes (Death)
  Sender: FDA-Public Use
  Company Number: 2004-04-0916

PATIENT
  Age: 49 Year
  Sex: Male
  Weight: 73 kg

DRUGS (6)
  1. VIRAFERONPEG [Suspect]
     Indication: HEPATITIS C
     Dosage: 75 MCG QW SUBCUTANEOUS
     Route: 058
     Dates: start: 20030505
  2. ALPRESS TABLETS [Suspect]
     Indication: HYPERTENSION
     Dosage: 5 MG QD ORAL
     Route: 048
     Dates: start: 19930101
  3. TENSTATEN TABLETS [Suspect]
     Indication: HYPERTENSION
     Dosage: 50 MG QD ORAL
     Route: 048
     Dates: start: 19930101
  4. VIRLIX (CETIRIZINE HCL) TABLETS [Suspect]
     Indication: RHINITIS ALLERGIC
     Dosage: 10 MG QD ORAL
     Route: 048
     Dates: start: 19930101
  5. HUMALOG [Suspect]
     Indication: DIABETES MELLITUS
     Dosage: 7 U TID SUBCUTANEOUS
     Route: 058
     Dates: start: 20030505
  6. UMULINE INJECTABLE [Suspect]
     Indication: DIABETES MELLITUS
     Dosage: 12 U BID SUBCUTANEOUS
     Route: 058
     Dates: start: 20030405

REACTIONS (7)
  - CARDIO-RESPIRATORY ARREST [None]
  - HYPOGLYCAEMIA [None]
  - HYPOTONIA [None]
  - MALAISE [None]
  - MUSCLE SPASMS [None]
  - MYDRIASIS [None]
  - PAROXYSMAL ARRHYTHMIA [None]
